FAERS Safety Report 6018824-6 (Version None)
Quarter: 2008Q4

REPORT INFORMATION
  Report Type: 
  Country: None (occurrence: None)
  Receive Date: 20081223
  Receipt Date: 20081212
  Transmission Date: 20090506
  Serious: Yes (Other)
  Sender: FDA-Public Use
  Company Number: FR-ELI_LILLY_AND_COMPANY-FR200812003635

PATIENT
  Age: 20 Year
  Sex: Female

DRUGS (3)
  1. CYMBALTA [Suspect]
     Indication: DIABETIC NEUROPATHY
     Dosage: 60 MG, DAILY (1/D)
     Route: 048
     Dates: start: 20080901, end: 20080901
  2. INSULIN [Concomitant]
     Indication: TYPE 1 DIABETES MELLITUS
     Dosage: UNK, UNKNOWN
     Route: 058
  3. ACETAMINOPHEN AND CODEINE PHOSPHATE [Concomitant]
     Indication: DIABETIC NEUROPATHY
     Dosage: UNK, AS NEEDED
     Route: 048

REACTIONS (1)
  - NEURALGIA [None]
